FAERS Safety Report 21119568 (Version 2)
Quarter: 2022Q3

REPORT INFORMATION
  Report Type: Spontaneous
  Country: US (occurrence: US)
  Receive Date: 20220722
  Receipt Date: 20220815
  Transmission Date: 20221027
  Serious: No
  Sender: FDA-Public Use
  Company Number: US-Calliditas-2022CAL00223

PATIENT
  Age: 26 Year
  Sex: Female

DRUGS (7)
  1. TARPEYO [Suspect]
     Active Substance: BUDESONIDE
     Indication: IgA nephropathy
     Dosage: 16 MG (4 MG CAPSULES) ONCE DAILY
     Route: 048
     Dates: start: 20220504
  2. PAXLOVID [Suspect]
     Active Substance: NIRMATRELVIR\RITONAVIR
     Indication: COVID-19
  3. PREDNISONE [Concomitant]
     Active Substance: PREDNISONE
     Dates: start: 202201
  4. PREDNISONE [Concomitant]
     Active Substance: PREDNISONE
     Dates: start: 202202
  5. PREDNISONE [Concomitant]
     Active Substance: PREDNISONE
     Dates: start: 202203
  6. VITAMINS [Concomitant]
     Active Substance: VITAMINS
  7. LOSARTAN POTASSIUM [Concomitant]
     Active Substance: LOSARTAN POTASSIUM

REACTIONS (6)
  - COVID-19 [Recovered/Resolved]
  - Mood swings [Recovered/Resolved]
  - Cushingoid [Recovered/Resolved]
  - Weight increased [Recovered/Resolved]
  - Swelling [Recovered/Resolved]
  - Drug interaction [Unknown]

NARRATIVE: CASE EVENT DATE: 20220621
